FAERS Safety Report 15720668 (Version 2)
Quarter: 2019Q1

REPORT INFORMATION
  Report Type: Spontaneous
  Country: JP (occurrence: JP)
  Receive Date: 20181213
  Receipt Date: 20190117
  Transmission Date: 20190417
  Serious: Yes (Other)
  Sender: FDA-Public Use
  Company Number: JP-GLAXOSMITHKLINE-JP2018JPN223033

PATIENT
  Age: 28 Year
  Sex: Male

DRUGS (2)
  1. SULFAMETHOXAZOLE + TRIMETHOPRIM [Concomitant]
     Active Substance: SULFAMETHOXAZOLE\TRIMETHOPRIM
     Indication: PNEUMOCYSTIS JIROVECII PNEUMONIA
     Dosage: UNK
  2. SAMTIREL [Suspect]
     Active Substance: ATOVAQUONE
     Indication: PNEUMOCYSTIS JIROVECII PNEUMONIA
     Dosage: 1500 MG, 1D
     Route: 048
     Dates: start: 20111228, end: 20120118

REACTIONS (4)
  - Pneumocystis jirovecii pneumonia [Recovered/Resolved]
  - Pneumonia [Recovered/Resolved]
  - Therapeutic response decreased [Unknown]
  - Pyrexia [Unknown]

NARRATIVE: CASE EVENT DATE: 20120119
